FAERS Safety Report 24252618 (Version 1)
Quarter: 2024Q3

REPORT INFORMATION
  Report Type: Spontaneous
  Country: US (occurrence: US)
  Receive Date: 20240827
  Receipt Date: 20240827
  Transmission Date: 20241016
  Serious: No
  Sender: AMGEN
  Company Number: US-AMGEN-USASP2024169766

PATIENT
  Age: 61 Year
  Sex: Female

DRUGS (3)
  1. ERENUMAB [Suspect]
     Active Substance: ERENUMAB
     Indication: Hemicrania continua
     Dosage: 70 MILLIGRAM
     Route: 058
  2. INDOMETHACIN [Concomitant]
     Active Substance: INDOMETHACIN
     Indication: Hemicrania continua
     Route: 065
  3. TOPIRAMATE [Concomitant]
     Active Substance: TOPIRAMATE
     Route: 065

REACTIONS (1)
  - Therapeutic response unexpected [Unknown]
